FAERS Safety Report 4407222-4 (Version None)
Quarter: 2004Q3

REPORT INFORMATION
  Report Type: 
  Country: None (occurrence: None)
  Receive Date: 20040721
  Receipt Date: 20040706
  Transmission Date: 20050211
  Serious: Yes (Hospitalization, Other)
  Sender: FDA-Public Use
  Company Number: USA040771867

PATIENT
  Age: 55 Year
  Sex: Female
  Weight: 85 kg

DRUGS (7)
  1. HUMULIN R [Suspect]
     Indication: DIABETES MELLITUS
     Dates: start: 19820101
  2. HUMULIN N [Suspect]
     Indication: DIABETES MELLITUS
     Dates: start: 19820101, end: 20000101
  3. LANTUS (INSULIN GLARGNE) [Concomitant]
  4. LIPITOR [Concomitant]
  5. ASPIRIN [Concomitant]
  6. NEURONTIN [Concomitant]
  7. SINGULAIR (MONTELUKAST) [Concomitant]

REACTIONS (22)
  - ABDOMINAL PAIN [None]
  - ANXIETY [None]
  - BLOOD CREATININE INCREASED [None]
  - BLOOD PRESSURE DECREASED [None]
  - CATARACT [None]
  - CONTUSION [None]
  - DIABETIC RETINOPATHY [None]
  - DIARRHOEA [None]
  - DYSPEPSIA [None]
  - FOOT FRACTURE [None]
  - HYPERTENSION [None]
  - KERATITIS [None]
  - LOCALISED INFECTION [None]
  - NAUSEA [None]
  - ONYCHOMYCOSIS [None]
  - OSTEOPENIA [None]
  - PHARMACEUTICAL PRODUCT COMPLAINT [None]
  - RENAL DISORDER [None]
  - SCAR [None]
  - SUPRAVENTRICULAR TACHYCARDIA [None]
  - URINARY TRACT INFECTION [None]
  - VISUAL ACUITY REDUCED [None]
